FAERS Safety Report 6236924-2 (Version None)
Quarter: 2009Q2

REPORT INFORMATION
  Report Type: 
  Country: None (occurrence: None)
  Receive Date: 20090619
  Receipt Date: 20090331
  Transmission Date: 20091009
  Serious: No
  Sender: FDA-Public Use
  Company Number: US-ASTRAZENECA-2009UW01127

PATIENT
  Age: 80 Year
  Sex: Female

DRUGS (5)
  1. SYMBICORT [Suspect]
     Indication: ASTHMA
     Dosage: 160/4.5 MCG, TWO PUFFS
     Route: 055
     Dates: start: 20071201, end: 20090111
  2. FOSAMAX [Concomitant]
  3. DIOVAN [Concomitant]
  4. PLENDIL [Concomitant]
  5. PRAVACHOL [Concomitant]

REACTIONS (2)
  - DRY EYE [None]
  - FEELING JITTERY [None]
